FAERS Safety Report 14254677 (Version 1)
Quarter: 2017Q4

REPORT INFORMATION
  Report Type: Spontaneous
  Country: US (occurrence: US)
  Receive Date: 20171206
  Receipt Date: 20171206
  Transmission Date: 20180321
  Serious: No
  Sender: FDA-Public Use
  Company Number: US-CIPLA LTD.-2017US17781

PATIENT

DRUGS (2)
  1. BUPROPION HYDROCHLORIDE XL [Suspect]
     Active Substance: BUPROPION HYDROCHLORIDE
     Dosage: 300 MG, UNK (CIPLA MANUFACTURED)
     Route: 065
  2. BUPROPION HYDROCHLORIDE XL [Suspect]
     Active Substance: BUPROPION HYDROCHLORIDE
     Dosage: 300 MG, UNK (LUPIN MANUFACTURED)
     Route: 065

REACTIONS (5)
  - Pyrexia [Unknown]
  - Nausea [Unknown]
  - Lymphadenopathy [Unknown]
  - Product substitution issue [Unknown]
  - Myalgia [Unknown]
